FAERS Safety Report 18154733 (Version 1)
Quarter: 2020Q3

REPORT INFORMATION
  Report Type: Spontaneous
  Country: IT (occurrence: IT)
  Receive Date: 20200817
  Receipt Date: 20200817
  Transmission Date: 20201103
  Serious: Yes (Death, Life-Threatening, Hospitalization, Other)
  Sender: FDA-Public Use
  Company Number: IT-HORIZON-PRE-0241-2020

PATIENT
  Age: 49 Year
  Sex: Female

DRUGS (3)
  1. MYCOPHENOLATE MOFETIL. [Suspect]
     Active Substance: MYCOPHENOLATE MOFETIL
     Indication: IMMUNOSUPPRESSANT DRUG THERAPY
  2. METHYLPREDNISOLONE. [Suspect]
     Active Substance: METHYLPREDNISOLONE
     Indication: ANTIPHOSPHOLIPID SYNDROME
  3. PREDNISONE. [Suspect]
     Active Substance: PREDNISONE
     Indication: ANTIPHOSPHOLIPID SYNDROME
     Dosage: 50 MG DAILY

REACTIONS (10)
  - Hepatic haemorrhage [Fatal]
  - Multiple organ dysfunction syndrome [Fatal]
  - Hypotension [Unknown]
  - Disseminated intravascular coagulation [Unknown]
  - Viral pharyngitis [Fatal]
  - Varicella zoster virus infection [Fatal]
  - Hepatic necrosis [Fatal]
  - Respiratory distress [Fatal]
  - Acute kidney injury [Fatal]
  - Hyperglycaemia [Fatal]
